FAERS Safety Report 21899057 (Version 1)
Quarter: 2023Q1

REPORT INFORMATION
  Report Type: Spontaneous
  Country: US (occurrence: None)
  Receive Date: 20230120
  Receipt Date: 20230120
  Transmission Date: 20230418
  Serious: Yes (Other)
  Sender: FDA-Public Use
  Company Number: None

PATIENT
  Age: 69 Year
  Sex: Female
  Weight: 77.11 kg

DRUGS (1)
  1. ALLERGY RELIEF (FEXOFENADINE HYDROCHLORIDE) [Suspect]
     Active Substance: FEXOFENADINE HYDROCHLORIDE
     Dates: start: 20221210, end: 20230110

REACTIONS (3)
  - Documented hypersensitivity to administered product [None]
  - Eye pruritus [None]
  - Sinusitis [None]

NARRATIVE: CASE EVENT DATE: 20230101
